FAERS Safety Report 8984631 (Version 2)
Quarter: 2013Q1

REPORT INFORMATION
  Report Type: Spontaneous
  Country: FR (occurrence: None)
  Receive Date: 20121214
  Receipt Date: 20121221
  Transmission Date: 20140127
  Serious: Yes (Other)
  Sender: FDA-Public Use
  Company Number: DSA_61317_2012

PATIENT
  Sex: 0

DRUGS (3)
  1. FLUOROURACIL [Suspect]
     Indication: NEUROENDOCRINE CARCINOMA
     Dosage: (1200 MG/M2) (UNKNOWN UNTIL NOT CONTINUING)???
     Route: 040
  2. FOLINIC ACID [Suspect]
     Indication: NEUROENDOCRINE CARCINOMA
     Dosage: UNKNOWN UNTIL NOT CONTINUING?
  3. IRINOTECAN (IRINOTECAN) [Suspect]
     Indication: NEUROENDOCRINE CARCINOMA
     Dosage: UNKNOWN UNTIL NOT CONTINUING?

REACTIONS (2)
  - Diarrhoea [None]
  - Toxicity to various agents [None]
